FAERS Safety Report 9486258 (Version 1)
Quarter: 2013Q3

REPORT INFORMATION
  Report Type: Spontaneous
  Country: US (occurrence: None)
  Receive Date: 20130827
  Receipt Date: 20130827
  Transmission Date: 20140515
  Serious: Yes (Death)
  Sender: FDA-Public Use
  Company Number: 163-POMAL-13082972

PATIENT
  Age: 56 Year
  Sex: Male

DRUGS (1)
  1. POMALYST [Suspect]
     Indication: PLASMA CELL MYELOMA
     Route: 048
     Dates: start: 201306, end: 2013

REACTIONS (5)
  - Disease progression [None]
  - Drug ineffective [None]
  - Atrial fibrillation [None]
  - Pneumonia [None]
  - Cellulitis [None]
